FAERS Safety Report 5771222-2 (Version None)
Quarter: 2008Q2

REPORT INFORMATION
  Report Type: 
  Country: None (occurrence: None)
  Receive Date: 20080613
  Receipt Date: 20080529
  Transmission Date: 20081010
  Serious: No
  Sender: FDA-Public Use
  Company Number: US-ABBOTT-08P-163-0453815-00

PATIENT
  Sex: Female
  Weight: 63.56 kg

DRUGS (13)
  1. HUMIRA [Suspect]
     Indication: RHEUMATOID ARTHRITIS
     Route: 058
     Dates: start: 20080528
  2. HUMIRA [Suspect]
     Indication: PSORIASIS
  3. LEFLUNOMIDE [Concomitant]
     Indication: RHEUMATOID ARTHRITIS
     Route: 048
  4. CLOPIDOGREL [Concomitant]
     Indication: CORONARY ARTERIAL STENT INSERTION
     Route: 048
  5. METOPROLOL SUCCINATE [Concomitant]
     Indication: BLOOD PRESSURE
     Route: 048
  6. CITALOPRAM HYDROBROMIDE [Concomitant]
     Indication: DEPRESSION
     Route: 048
  7. TOCOPHEROL CONCENTRATE CAP [Concomitant]
     Indication: VITAMIN SUPPLEMENTATION
     Route: 048
  8. GINKGO BILOBA [Concomitant]
     Indication: PHYTOTHERAPY
     Route: 048
  9. VITIS VINIFERA EXTRACT [Concomitant]
     Indication: VITAMIN SUPPLEMENTATION
     Route: 048
  10. BAYER ASPIRIN WITH CA+ [Concomitant]
     Indication: MINERAL SUPPLEMENTATION
     Dosage: LOW DOSE
     Route: 048
  11. GREEN SOURCE VITAMIN [Concomitant]
     Indication: VITAMIN SUPPLEMENTATION
     Route: 048
  12. ASCORBIC ACID [Concomitant]
     Indication: VITAMIN SUPPLEMENTATION
     Route: 048
  13. CALCIUM WITH VITAMIN D [Concomitant]
     Indication: MINERAL SUPPLEMENTATION
     Route: 048

REACTIONS (3)
  - PRURITUS [None]
  - RASH MACULAR [None]
  - URTICARIA [None]
